FAERS Safety Report 18380356 (Version 1)
Quarter: 2020Q4

REPORT INFORMATION
  Report Type: Spontaneous
  Country: US (occurrence: US)
  Receive Date: 20201014
  Receipt Date: 20201014
  Transmission Date: 20210114
  Serious: Yes (Other)
  Sender: FDA-Public Use
  Company Number: US-SUN PHARMACEUTICAL INDUSTRIES LTD-2020R1-263797

PATIENT
  Age: 69 Year
  Sex: Female

DRUGS (2)
  1. QUINIDINE [Suspect]
     Active Substance: QUINIDINE
     Indication: VENTRICULAR TACHYCARDIA
     Dosage: UNK
     Route: 065
  2. AMIODARONE [Concomitant]
     Active Substance: AMIODARONE
     Indication: VENTRICULAR TACHYCARDIA
     Route: 065

REACTIONS (1)
  - Drug hypersensitivity [Recovered/Resolved]
